FAERS Safety Report 11232228 (Version 1)
Quarter: 2015Q3

REPORT INFORMATION
  Report Type: Spontaneous
  Country: IT (occurrence: IT)
  Receive Date: 20150701
  Receipt Date: 20150701
  Transmission Date: 20151125
  Serious: Yes (Other)
  Sender: FDA-Public Use
  Company Number: IT-PFIZER INC-2015216891

PATIENT
  Age: 87 Year
  Sex: Female

DRUGS (2)
  1. LANOXIN [Suspect]
     Active Substance: DIGOXIN
     Indication: CARDIAC FAILURE CHRONIC
     Dosage: 125 ?G, DAILY
     Route: 048
     Dates: start: 20150201, end: 20150221
  2. UNIPRIL [Suspect]
     Active Substance: RAMIPRIL
     Indication: HYPERTENSION
     Dosage: 5 MG, DAILY
     Route: 048
     Dates: start: 20150201, end: 20150221

REACTIONS (2)
  - Epistaxis [Recovered/Resolved]
  - Hypertensive crisis [Recovered/Resolved]

NARRATIVE: CASE EVENT DATE: 20150221
